FAERS Safety Report 6664150-1 (Version None)
Quarter: 2010Q2

REPORT INFORMATION
  Report Type: 
  Country: None (occurrence: None)
  Receive Date: 20100401
  Receipt Date: 20100326
  Transmission Date: 20101027
  Serious: Yes (Other)
  Sender: FDA-Public Use
  Company Number: B0644373A

PATIENT
  Sex: Female
  Weight: 77 kg

DRUGS (1)
  1. LAMICTAL CD [Suspect]
     Indication: EPILEPSY
     Route: 048
     Dates: start: 19990501

REACTIONS (13)
  - CONDITION AGGRAVATED [None]
  - CONFUSIONAL STATE [None]
  - CONVULSION [None]
  - DIZZINESS [None]
  - EPILEPSY [None]
  - HEADACHE [None]
  - MALAISE [None]
  - MUSCLE TWITCHING [None]
  - NAUSEA [None]
  - PARTIAL SEIZURES [None]
  - TREMOR [None]
  - VOMITING [None]
  - WITHDRAWAL SYNDROME [None]
